FAERS Safety Report 8367425-3 (Version None)
Quarter: 2012Q2

REPORT INFORMATION
  Report Type: 
  Country: None (occurrence: None)
  Receive Date: 20120517
  Receipt Date: 20120511
  Transmission Date: 20120825
  Serious: Yes (Hospitalization, Disabling, Other)
  Sender: FDA-Public Use
  Company Number: US-MERCK-1110USA04475

PATIENT
  Age: 49 Year
  Sex: Female

DRUGS (1)
  1. FOSAMAX [Suspect]
     Indication: OSTEOPOROSIS
     Route: 048
     Dates: start: 19990101, end: 20080101

REACTIONS (37)
  - HUMERUS FRACTURE [None]
  - LOW TURNOVER OSTEOPATHY [None]
  - ADVERSE EVENT [None]
  - TOOTHACHE [None]
  - BRUXISM [None]
  - COMA [None]
  - ASTHMA [None]
  - PEMPHIGOID [None]
  - DIABETES MELLITUS [None]
  - TONGUE HAEMORRHAGE [None]
  - PERIODONTAL DISEASE [None]
  - TOOTH CROWDING [None]
  - SENSITIVITY OF TEETH [None]
  - CONVULSION [None]
  - ANXIETY [None]
  - ARTHRITIS [None]
  - DENTAL CARIES [None]
  - HYPOTHYROIDISM [None]
  - SINUS DISORDER [None]
  - BREATH ODOUR [None]
  - OSTEONECROSIS OF JAW [None]
  - THORACIC VERTEBRAL FRACTURE [None]
  - DENTAL PLAQUE [None]
  - BONE DENSITY DECREASED [None]
  - ORAL LICHEN PLANUS [None]
  - TOOTH DISORDER [None]
  - BACK DISORDER [None]
  - HYPERTROPHY OF TONGUE PAPILLAE [None]
  - DYSGEUSIA [None]
  - HERPES ZOSTER [None]
  - MULTIPLE FRACTURES [None]
  - UPPER LIMB FRACTURE [None]
  - ROAD TRAFFIC ACCIDENT [None]
  - PEMPHIGUS [None]
  - ARTHROPATHY [None]
  - PULPITIS DENTAL [None]
  - HYPERTENSION [None]
